FAERS Safety Report 5883805-X (Version None)
Quarter: 2008Q3

REPORT INFORMATION
  Report Type: 
  Country: None (occurrence: None)
  Receive Date: 20080915
  Receipt Date: 20080903
  Transmission Date: 20090109
  Serious: Yes (Other)
  Sender: FDA-Public Use
  Company Number: JP-ROCHE-506607

PATIENT
  Sex: Male

DRUGS (20)
  1. VALGANCICLOVIR HCL [Suspect]
     Indication: CYTOMEGALOVIRUS OESOPHAGITIS
     Route: 048
     Dates: start: 20060707
  2. VALGANCICLOVIR HCL [Suspect]
     Route: 048
     Dates: start: 20070621, end: 20070712
  3. VALGANCICLOVIR HCL [Suspect]
     Route: 048
     Dates: start: 20070713, end: 20070820
  4. REYATAZ [Suspect]
     Indication: HIV INFECTION
     Route: 048
     Dates: start: 20060905
  5. CLARITHROMYCIN [Suspect]
     Route: 048
     Dates: start: 20060925, end: 20061002
  6. CLARITHROMYCIN [Suspect]
     Route: 048
     Dates: start: 20061010, end: 20061211
  7. ETHAMBUTOL HCL [Suspect]
     Route: 048
     Dates: start: 20060925
  8. ZITHROMAX [Suspect]
     Route: 048
     Dates: start: 20061003, end: 20061009
  9. ZITHROMAX [Suspect]
     Route: 048
     Dates: start: 20061212, end: 20070122
  10. RIFABUTIN [Suspect]
     Route: 065
     Dates: start: 20061003, end: 20070331
  11. COTRIM [Concomitant]
     Route: 048
     Dates: start: 20060625, end: 20060724
  12. COTRIM [Concomitant]
     Route: 048
     Dates: start: 20060725
  13. DIFLUCAN [Concomitant]
     Dates: start: 20060630, end: 20060713
  14. FUNGIZONE [Concomitant]
     Route: 048
     Dates: start: 20060714, end: 20060801
  15. FUNGIZONE [Concomitant]
     Route: 048
     Dates: start: 20060905, end: 20060925
  16. NORVIR [Concomitant]
     Dosage: DRUG REPORTED AS NORVIR_SOFT.
     Route: 048
     Dates: start: 20060905
  17. EPZICOM [Concomitant]
     Route: 048
     Dates: start: 20060905
  18. RIFADIN [Concomitant]
     Route: 048
     Dates: start: 20061010, end: 20070604
  19. DOXORUBICIN HCL [Concomitant]
     Dosage: DOSAGE REGIMEN: 30 MG EVERY 3-4 WEEKS.
     Dates: start: 20061121
  20. DOXORUBICIN HYDROCHLORIDE [Concomitant]
     Dosage: REPORTED VOR 3-4 WEEKS AS AN OUTPATIENT.
     Dates: start: 20061121

REACTIONS (5)
  - ATYPICAL MYCOBACTERIAL INFECTION [None]
  - CYTOMEGALOVIRUS CHORIORETINITIS [None]
  - HEPATIC FUNCTION ABNORMAL [None]
  - KAPOSI'S SARCOMA [None]
  - VISUAL FIELD DEFECT [None]
